FAERS Safety Report 9062080 (Version 3)
Quarter: 2014Q2

REPORT INFORMATION
  Report Type: Spontaneous
  Country: US (occurrence: US)
  Receive Date: 20130129
  Receipt Date: 20140618
  Transmission Date: 20141212
  Serious: Yes (Hospitalization, Other)
  Sender: FDA-Public Use
  Company Number: US-009507513-1301USA010660

PATIENT
  Sex: Female
  Weight: 54.42 kg

DRUGS (1)
  1. NUVARING [Suspect]
     Indication: CONTRACEPTION
     Dosage: UNK
     Route: 067
     Dates: start: 20031110, end: 20040101

REACTIONS (12)
  - Pleural effusion [Unknown]
  - Pulmonary embolism [Recovered/Resolved]
  - Dysuria [Unknown]
  - Abortion spontaneous [Recovered/Resolved]
  - Uterine dilation and curettage [Unknown]
  - Scoliosis [Unknown]
  - Pneumonia [Unknown]
  - Breast discharge [Unknown]
  - Maternal exposure before pregnancy [Unknown]
  - Viral upper respiratory tract infection [Unknown]
  - Conjunctivitis viral [Unknown]
  - Fall [Unknown]
